FAERS Safety Report 7951554-X (Version None)
Quarter: 2011Q4

REPORT INFORMATION
  Report Type: 
  Country: None (occurrence: None)
  Receive Date: 20111201
  Receipt Date: 20111122
  Transmission Date: 20120403
  Serious: Yes (Other)
  Sender: FDA-Public Use
  Company Number: US-JNJFOC-20111109960

PATIENT
  Sex: Female
  Weight: 45.6 kg

DRUGS (4)
  1. REMICADE [Suspect]
     Dosage: INFLIXIMAB INFUSED AT A LOWER DOSE.
     Route: 042
  2. BALSALAZIDE DISODIUM [Concomitant]
     Indication: COLITIS ULCERATIVE
     Dosage: 3 TABLETS
     Route: 048
  3. REMICADE [Suspect]
     Route: 042
     Dates: start: 20111101, end: 20111101
  4. REMICADE [Suspect]
     Indication: COLITIS ULCERATIVE
     Route: 042

REACTIONS (4)
  - DYSPNOEA [None]
  - RASH [None]
  - ERYTHEMA [None]
  - INFUSION RELATED REACTION [None]
